FAERS Safety Report 7425306-3 (Version None)
Quarter: 2011Q2

REPORT INFORMATION
  Report Type: 
  Country: None (occurrence: None)
  Receive Date: 20110414
  Receipt Date: 20110407
  Transmission Date: 20111010
  Serious: Yes (Death, Life-Threatening)
  Sender: FDA-Public Use
  Company Number: 2011SP015825

PATIENT
  Sex: Male

DRUGS (1)
  1. SAPHRIS [Suspect]
     Indication: SCHIZOAFFECTIVE DISORDER
     Dosage: 10 MG;BID; SL
     Route: 060

REACTIONS (6)
  - AGGRESSION [None]
  - VICTIM OF HOMICIDE [None]
  - PARANOIA [None]
  - PANIC ATTACK [None]
  - AGITATION [None]
  - GUN SHOT WOUND [None]
